FAERS Safety Report 7411216-4 (Version None)
Quarter: 2011Q2

REPORT INFORMATION
  Report Type: 
  Country: None (occurrence: None)
  Receive Date: 20110413
  Receipt Date: 20101020
  Transmission Date: 20111010
  Serious: Yes (Other)
  Sender: FDA-Public Use
  Company Number: US-BRISTOL-MYERS SQUIBB COMPANY-15045263

PATIENT
  Sex: Male

DRUGS (3)
  1. DIPHENHYDRAMINE [Concomitant]
     Indication: PREMEDICATION
     Dosage: DIPHENHYDRAMINE WAS GIVEN WITH 1ST INFUSION
  2. ERBITUX [Suspect]
     Indication: HEAD AND NECK CANCER
     Dates: start: 20091101
  3. STEROIDS [Concomitant]
     Indication: PREMEDICATION
     Dosage: DIPHENHYDRAMINE AND STEROIDS WERE ADMINISTERED WITH RECHALLENGED DOSE.

REACTIONS (1)
  - HYPERSENSITIVITY [None]
